FAERS Safety Report 9916663 (Version 1)
Quarter: 2014Q1

REPORT INFORMATION
  Report Type: Spontaneous
  Country: FR (occurrence: FR)
  Receive Date: 20140221
  Receipt Date: 20140221
  Transmission Date: 20141002
  Serious: Yes (Hospitalization)
  Sender: FDA-Public Use
  Company Number: FR-UCBSA-112657

PATIENT
  Age: 64 Year
  Sex: Female

DRUGS (7)
  1. KEPPRA [Suspect]
     Indication: CONVULSION PROPHYLAXIS
     Dosage: 100 MG/ML; RECEIVED 50ML (= 5G) INSTEAD OF 5ML
     Route: 048
     Dates: start: 20140120, end: 20140120
  2. KEPPRA [Suspect]
     Indication: CONVULSION PROPHYLAXIS
     Dosage: 100 MG/ML
     Route: 048
     Dates: start: 201308
  3. DIFFU-K [Concomitant]
     Dosage: DOSE: 2 CAPSULES
  4. SOLUPRED [Concomitant]
     Dosage: 60 MG
  5. OGASTORO [Concomitant]
     Dosage: 30 MG
  6. LEVOTHYROX [Concomitant]
     Dosage: 100 MCG
  7. EUPRESSYL [Concomitant]
     Dosage: 30 MG

REACTIONS (2)
  - Somnolence [Recovered/Resolved]
  - Accidental overdose [Recovered/Resolved]
